FAERS Safety Report 8556321-4 (Version None)
Quarter: 2012Q3

REPORT INFORMATION
  Report Type: 
  Country: None (occurrence: None)
  Receive Date: 20120801
  Receipt Date: 20120725
  Transmission Date: 20120928
  Serious: Yes (Death)
  Sender: FDA-Public Use
  Company Number: US-JNJFOC-20120714858

PATIENT
  Age: 67 Year
  Sex: Male

DRUGS (6)
  1. AMPHOTERICIN B [Suspect]
     Indication: FUNGAL INFECTION
     Dosage: FOR 3 MONTHS
     Route: 037
  2. PREDNISONE [Concomitant]
     Indication: IMMUNOSUPPRESSION
     Route: 065
  3. AZATHIOPRINE [Concomitant]
     Indication: IMMUNOSUPPRESSION
     Route: 065
  4. TACROLIMUS [Concomitant]
     Indication: IMMUNOSUPPRESSION
     Route: 065
  5. ITRACONAZOLE [Suspect]
     Indication: FUNGAL INFECTION
     Route: 065
  6. AMPHOTERICIN B-DEOXYCHOLATE [Suspect]
     Indication: FUNGAL INFECTION
     Dosage: FOR 4 DAYS
     Route: 065

REACTIONS (1)
  - DEATH [None]
